FAERS Safety Report 22207453 (Version 1)
Quarter: 2023Q2

REPORT INFORMATION
  Report Type: Spontaneous
  Country: NO (occurrence: NO)
  Receive Date: 20230413
  Receipt Date: 20230413
  Transmission Date: 20230722
  Serious: Yes (Life-Threatening, Hospitalization, Disabling)
  Sender: FDA-Public Use
  Company Number: None

PATIENT
  Age: 32 Year
  Sex: Male
  Weight: 105 kg

DRUGS (4)
  1. RISPERIDONE [Suspect]
     Active Substance: RISPERIDONE
     Indication: Anxiety
     Route: 065
     Dates: start: 2015, end: 2017
  2. RISPERIDONE [Suspect]
     Active Substance: RISPERIDONE
     Indication: Restlessness
     Route: 065
     Dates: start: 2013
  3. RISPERIDONE [Suspect]
     Active Substance: RISPERIDONE
     Dates: start: 201012, end: 201701
  4. RISPERDAL [Suspect]
     Active Substance: RISPERIDONE
     Indication: Restlessness
     Route: 065
     Dates: start: 2011, end: 2016

REACTIONS (9)
  - Cardiac disorder [Unknown]
  - Lung disorder [Unknown]
  - Blood oestrogen increased [Unknown]
  - Blood testosterone decreased [Unknown]
  - Blood testosterone abnormal [Unknown]
  - Hypometabolism [Unknown]
  - Obesity [Unknown]
  - Weight increased [Unknown]
  - Dental caries [Unknown]

NARRATIVE: CASE EVENT DATE: 20110101
